FAERS Safety Report 20947901 (Version 2)
Quarter: 2022Q3

REPORT INFORMATION
  Report Type: Spontaneous
  Country: AR (occurrence: AR)
  Receive Date: 20220611
  Receipt Date: 20220629
  Transmission Date: 20221027
  Serious: Yes (Hospitalization)
  Sender: FDA-Public Use
  Company Number: AR-NOVARTISPH-NVSC2022AR134520

PATIENT
  Age: 76 Year
  Sex: Female

DRUGS (3)
  1. EXFORGE [Suspect]
     Active Substance: AMLODIPINE BESYLATE\VALSARTAN
     Indication: Hypertension
     Dosage: 1 DOSAGE FORM (5/320 MG) IN THE MORNING
     Route: 065
     Dates: start: 1994
  2. DIABESIL [Concomitant]
     Indication: Product used for unknown indication
     Dosage: 1 DOSAGE FORM, QD, (PER DAY, IN THE MORNING, AWAY FROM MEALS, START DATE: 3 YRS AGO APPROX)
     Route: 065
  3. HIPOLIPOL [Concomitant]
     Indication: Product used for unknown indication
     Dosage: 1 DOSAGE FORM, QD, (PER DAY, AT NOON OR IN THE EVENING, 3 YRS AGO)
     Route: 065

REACTIONS (8)
  - Breast cancer [Unknown]
  - Neoplasm [Unknown]
  - Breast mass [Unknown]
  - Product availability issue [Unknown]
  - Chest pain [Recovered/Resolved]
  - Headache [Unknown]
  - Blood pressure increased [Unknown]
  - Blood cholesterol abnormal [Unknown]

NARRATIVE: CASE EVENT DATE: 20220310
